FAERS Safety Report 5688106 (Version 4)
Quarter: 2013Q1

REPORT INFORMATION
  Report Type: Spontaneous
  Country: US (occurrence: US)
  Receive Date: 20041119
  Receipt Date: 20130321
  Transmission Date: 20140127
  Serious: Yes (Hospitalization)
  Sender: FDA-Public Use
  Company Number: US-JNJFOC-20041103290

PATIENT
  Age: 75 Year
  Sex: Female

DRUGS (6)
  1. MOTRIN [Suspect]
     Indication: PAIN
     Dates: start: 200111, end: 200311
  2. AVAPRO [Concomitant]
     Dosage: 300 MG
  3. PHENYTOIN [Concomitant]
     Dosage: 400 MG
  4. AMITRIPTYLINE [Concomitant]
     Dosage: 75 MG
  5. ACTONEL [Concomitant]
     Dosage: 35 MG WEEKLY
  6. HYDROCHLOROTHIAZIDE [Concomitant]
     Dosage: 12.5 MG

REACTIONS (3)
  - Cerebral haemorrhage [Recovered/Resolved]
  - Loss of consciousness [Recovered/Resolved]
  - Apparent death [None]
